FAERS Safety Report 6663219-5 (Version None)
Quarter: 2010Q2

REPORT INFORMATION
  Report Type: 
  Country: None (occurrence: None)
  Receive Date: 20100401
  Receipt Date: 20100325
  Transmission Date: 20101027
  Serious: Yes (Death, Other)
  Sender: FDA-Public Use
  Company Number: PHHY2010EC19542

PATIENT
  Age: 74 Year
  Sex: Female

DRUGS (3)
  1. ACLASTA [Suspect]
     Indication: OSTEOPOROSIS POSTMENOPAUSAL
     Dosage: 1 STAT
     Dates: start: 20091101
  2. COUMADIN [Concomitant]
     Dosage: UNK
     Dates: end: 20100324
  3. COUMADIN [Concomitant]
     Dosage: UNK
     Dates: start: 20100326

REACTIONS (5)
  - CEREBROVASCULAR ACCIDENT [None]
  - GENERAL PHYSICAL HEALTH DETERIORATION [None]
  - HEMIPLEGIA [None]
  - MALAISE [None]
  - MYOCARDIAL INFARCTION [None]
